FAERS Safety Report 5627077-X (Version None)
Quarter: 2008Q1

REPORT INFORMATION
  Report Type: 
  Country: None (occurrence: None)
  Receive Date: 20080115
  Receipt Date: 20070323
  Transmission Date: 20080703
  Serious: Yes (Other)
  Sender: FDA-Public Use
  Company Number: 2007023981

PATIENT
  Age: 49 Year
  Sex: Female
  Weight: 92.4 kg

DRUGS (8)
  1. AROMASIN [Suspect]
     Indication: BREAST CANCER STAGE III
     Dosage: 25 MG (25 MG,QD: EVERY DAY)
     Dates: start: 20050914
  2. EFFEXOR XR [Concomitant]
  3. VITAMIN E [Concomitant]
  4. AXID [Concomitant]
  5. IPRATROPIUM BROMIDE [Concomitant]
  6. WELLBUTRIN XL [Concomitant]
  7. AMITRIPTYLINE HCL [Concomitant]
  8. LIPITOR [Concomitant]

REACTIONS (1)
  - CARDIAC FAILURE CONGESTIVE [None]
